FAERS Safety Report 14759137 (Version 5)
Quarter: 2018Q2

REPORT INFORMATION
  Report Type: Spontaneous
  Country: GB (occurrence: GB)
  Receive Date: 20180413
  Receipt Date: 20180504
  Transmission Date: 20180711
  Serious: Yes (Life-Threatening, Hospitalization, Other)
  Sender: FDA-Public Use
  Company Number: GB-B.I. PHARMACEUTICALS,INC./RIDGEFIELD-2018-BI-020105

PATIENT
  Age: 29 Year
  Sex: Female

DRUGS (13)
  1. THEOPHYLLINE [Concomitant]
     Active Substance: THEOPHYLLINE ANHYDROUS
     Indication: ASTHMA
     Route: 065
  2. MAGNESIUM SULFATE. [Suspect]
     Active Substance: MAGNESIUM SULFATE
     Indication: ASTHMA
     Route: 042
  3. SALBUTAMOL [Suspect]
     Active Substance: ALBUTEROL
     Route: 042
  4. ATROVENT [Suspect]
     Active Substance: IPRATROPIUM BROMIDE
     Indication: ASTHMA
     Route: 065
  5. HYDROCORTISONE. [Suspect]
     Active Substance: HYDROCORTISONE
     Indication: ASTHMA
     Route: 042
  6. EPINEPHRINE. [Suspect]
     Active Substance: EPINEPHRINE
     Indication: ASTHMA
     Route: 065
  7. MONTELUKAST [Concomitant]
     Active Substance: MONTELUKAST SODIUM
     Indication: ASTHMA
     Route: 065
  8. SALBUTAMOL [Suspect]
     Active Substance: ALBUTEROL
     Indication: ASTHMA
     Dosage: VIA NEBULIZATION
     Route: 065
  9. SALBUTAMOL [Suspect]
     Active Substance: ALBUTEROL
     Dosage: FORM-INTRAVENOUS INFUSION
     Route: 042
  10. KETAMINE [Suspect]
     Active Substance: KETAMINE
     Indication: ASTHMA
     Dosage: FORM: INTRAVENOUS INFUSION
     Route: 042
  11. KETAMINE [Suspect]
     Active Substance: KETAMINE
     Dosage: FORM: INTRAVENOUS INFUSION
     Route: 042
  12. SEVOFLURANE. [Suspect]
     Active Substance: SEVOFLURANE
     Indication: ASTHMA
     Dosage: DAILY DOSE-8 %
     Route: 055
  13. PREDNISOLONE. [Concomitant]
     Active Substance: PREDNISOLONE
     Indication: ASTHMA
     Dosage: 30 MG
     Route: 065

REACTIONS (19)
  - Asthma [Recovered/Resolved]
  - Lung hyperinflation [Recovering/Resolving]
  - Dyspnoea [Recovering/Resolving]
  - PCO2 increased [Recovering/Resolving]
  - Respiratory rate increased [Recovering/Resolving]
  - Cyanosis [Recovering/Resolving]
  - PO2 decreased [Recovering/Resolving]
  - Drug ineffective [Recovering/Resolving]
  - Oxygen saturation decreased [Recovering/Resolving]
  - Wheezing [Recovering/Resolving]
  - Blood pH decreased [Unknown]
  - Bronchospasm [Recovering/Resolving]
  - Airway peak pressure increased [Recovering/Resolving]
  - Drug ineffective [Unknown]
  - Respiratory acidosis [Recovering/Resolving]
  - Off label use [Unknown]
  - Hypercapnia [Unknown]
  - Blood bicarbonate decreased [Recovering/Resolving]
  - Blood lactic acid increased [Recovering/Resolving]
